FAERS Safety Report 5322514-2 (Version None)
Quarter: 2007Q2

REPORT INFORMATION
  Report Type: 
  Country: None (occurrence: None)
  Receive Date: 20070511
  Receipt Date: 20070501
  Transmission Date: 20071010
  Serious: Yes (Other)
  Sender: FDA-Public Use
  Company Number: HQWYE962603MAY07

PATIENT
  Sex: Male

DRUGS (2)
  1. TYGACIL [Suspect]
     Indication: SKIN INFECTION
     Route: 042
     Dates: end: 20070501
  2. RIFAMPICIN [Concomitant]

REACTIONS (3)
  - NEPHRITIS [None]
  - RASH [None]
  - STEVENS-JOHNSON SYNDROME [None]
